FAERS Safety Report 5006721-4 (Version None)
Quarter: 2006Q2

REPORT INFORMATION
  Report Type: 
  Country: None (occurrence: None)
  Receive Date: 20060519
  Receipt Date: 20060511
  Transmission Date: 20061013
  Serious: Yes (Other)
  Sender: FDA-Public Use
  Company Number: US-MERCK-0605USA01988

PATIENT
  Age: 6 Year
  Sex: Female
  Weight: 23 kg

DRUGS (6)
  1. SINGULAIR [Suspect]
     Indication: ASTHMA
     Route: 048
     Dates: start: 20030604
  2. SINGULAIR [Suspect]
     Route: 048
     Dates: start: 20050711, end: 20060426
  3. FLOVENT [Concomitant]
     Route: 055
  4. ALBUTEROL [Concomitant]
     Indication: ASTHMA
     Route: 065
     Dates: start: 20050611
  5. XOPENEX [Concomitant]
     Indication: ASTHMA
     Route: 055
     Dates: start: 20030604
  6. XOPENEX [Concomitant]
     Route: 055
     Dates: start: 20041102

REACTIONS (2)
  - HENOCH-SCHONLEIN PURPURA [None]
  - STREPTOCOCCAL INFECTION [None]
